FAERS Safety Report 20723503 (Version 4)
Quarter: 2022Q4

REPORT INFORMATION
  Report Type: Report from Study
  Country: IL (occurrence: None)
  Receive Date: 20220419
  Receipt Date: 20221021
  Transmission Date: 20230112
  Serious: Yes (Hospitalization)
  Sender: FDA-Public Use
  Company Number: IL-ROCHE-2857068

PATIENT
  Age: 78 Year
  Sex: Male
  Weight: 87.2 kg

DRUGS (14)
  1. COBIMETINIB [Suspect]
     Active Substance: COBIMETINIB
     Indication: Lung squamous cell carcinoma metastatic
     Dosage: MOST RECENT DOSE (60 MG) PRIOR TO AE ON 16/JUN/2021 AT 60 MG AND PRIOR TO SAE 22/JUN/2021 AT 720 MG.
     Route: 048
     Dates: start: 20210429
  2. ATEZOLIZUMAB [Suspect]
     Active Substance: ATEZOLIZUMAB
     Indication: Lung squamous cell carcinoma metastatic
     Dosage: MOST RECENT DOSE PRIOR TO SAE ON 24/MAY/2021 AT 1680 MG
     Route: 041
     Dates: start: 20210524
  3. VEMURAFENIB [Suspect]
     Active Substance: VEMURAFENIB
     Indication: Lung squamous cell carcinoma metastatic
     Dosage: MOST RECENT DOSE PRIOR TO SAE ON 18/JUN/2021 AND 22/JUN/2021 AT 720 MG.?ON DAYS 1-21 OF THE INITIAL
     Route: 048
     Dates: start: 20210429
  4. AMLODIPINE [Concomitant]
     Active Substance: AMLODIPINE BESYLATE
     Indication: Hypertension
     Route: 048
     Dates: start: 202010
  5. TORVA (ISRAEL) [Concomitant]
     Indication: Hypercholesterolaemia
     Route: 048
     Dates: start: 202010
  6. ALFA D [Concomitant]
     Indication: Vitamin D deficiency
     Route: 048
     Dates: start: 202010, end: 20210622
  7. ASPIRIN [Concomitant]
     Active Substance: ASPIRIN
     Indication: Hypercholesterolaemia
     Route: 048
     Dates: start: 202010
  8. METAMIZOLE [Concomitant]
     Active Substance: METAMIZOLE
     Indication: Pain in jaw
     Dosage: OTHER
     Dates: start: 2019
  9. ARCOXIA [Concomitant]
     Active Substance: ETORICOXIB
     Indication: Pain in jaw
     Route: 048
     Dates: start: 2019
  10. LOSEC [Concomitant]
     Active Substance: OMEPRAZOLE
     Indication: Prophylaxis
     Route: 048
     Dates: start: 202008
  11. TRAMADOL [Concomitant]
     Active Substance: TRAMADOL
     Indication: Headache
     Route: 048
     Dates: start: 20210523, end: 20210525
  12. N-ALERGYA [Concomitant]
     Indication: Pruritus
     Route: 048
     Dates: start: 20210621, end: 20210622
  13. N-ALERGYA [Concomitant]
     Indication: Rash
     Route: 048
     Dates: start: 20210811, end: 20210812
  14. CHOLECALCIFEROL [Concomitant]
     Active Substance: CHOLECALCIFEROL
     Route: 048
     Dates: start: 20210623

REACTIONS (1)
  - Drug reaction with eosinophilia and systemic symptoms [Recovered/Resolved]

NARRATIVE: CASE EVENT DATE: 20210618
